FAERS Safety Report 19036026 (Version 2)
Quarter: 2021Q3

REPORT INFORMATION
  Report Type: Spontaneous
  Country: US (occurrence: US)
  Receive Date: 20210321
  Receipt Date: 20210712
  Transmission Date: 20211014
  Serious: Yes (Hospitalization)
  Sender: FDA-Public Use
  Company Number: US-TEVA-2021-US-1890757

PATIENT
  Sex: Female

DRUGS (4)
  1. TACROLIMUS. [Concomitant]
     Active Substance: TACROLIMUS
     Indication: LICHEN SCLEROSUS
     Route: 061
     Dates: end: 2019
  2. BETAMETHASONE DIPROPIONATE. [Suspect]
     Active Substance: BETAMETHASONE DIPROPIONATE
     Indication: LICHEN SCLEROSUS
     Route: 061
     Dates: end: 2019
  3. HALOBETASOL PROPIONATE. [Suspect]
     Active Substance: HALOBETASOL PROPIONATE
     Indication: LICHEN SCLEROSUS
     Route: 061
  4. CLOBETASOL DIPROPIONATE [Suspect]
     Active Substance: CLOBETASOL PROPIONATE
     Indication: LICHEN SCLEROSUS
     Route: 061
     Dates: end: 2019

REACTIONS (1)
  - Skin squamous cell carcinoma recurrent [Recovered/Resolved]
